FAERS Safety Report 5497184-3 (Version None)
Quarter: 2007Q4

REPORT INFORMATION
  Report Type: 
  Country: None (occurrence: None)
  Receive Date: 20071023
  Receipt Date: 20071009
  Transmission Date: 20080405
  Serious: Yes (Other)
  Sender: FDA-Public Use
  Company Number: US021470

PATIENT
  Age: 47 Year
  Sex: Female

DRUGS (1)
  1. FENTANYL [Suspect]

REACTIONS (7)
  - ANAPHYLACTIC REACTION [None]
  - COLD SWEAT [None]
  - EYELID OEDEMA [None]
  - HYPOTENSION [None]
  - MALAISE [None]
  - PRURITUS [None]
  - TACHYCARDIA [None]
